FAERS Safety Report 15730034 (Version 1)
Quarter: 2018Q4

REPORT INFORMATION
  Report Type: Spontaneous
  Country: PT (occurrence: PT)
  Receive Date: 20181217
  Receipt Date: 20181217
  Transmission Date: 20190205
  Serious: Yes (Other)
  Sender: FDA-Public Use
  Company Number: PT-SAKK-2018SA338474AA

PATIENT
  Age: 66 Year
  Sex: Male

DRUGS (5)
  1. GOSERELIN [Concomitant]
     Active Substance: GOSERELIN
     Dosage: 10,8
     Dates: start: 201301
  2. JEVTANA [Suspect]
     Active Substance: CABAZITAXEL
     Dosage: 25 MG
     Route: 042
  3. JEVTANA [Suspect]
     Active Substance: CABAZITAXEL
     Indication: PROSTATE CANCER
     Dosage: 25 MG/M2, Q3W
     Route: 042
     Dates: start: 201802, end: 201802
  4. PREDNISOLONE. [Concomitant]
     Active Substance: PREDNISOLONE
     Dosage: UNK
     Dates: start: 201802
  5. DENOSUMAB [Concomitant]
     Active Substance: DENOSUMAB
     Dosage: UNK
     Dates: start: 20170307

REACTIONS (9)
  - Prostatic specific antigen increased [Not Recovered/Not Resolved]
  - Diarrhoea [Unknown]
  - Hepatic mass [Unknown]
  - Nausea [Unknown]
  - Pulmonary mass [Unknown]
  - Neck mass [Unknown]
  - Asthenia [Unknown]
  - Neurotoxicity [Unknown]
  - Synovial cyst [Unknown]

NARRATIVE: CASE EVENT DATE: 201804
